FAERS Safety Report 11343287 (Version 3)
Quarter: 2015Q3

REPORT INFORMATION
  Report Type: Report from Study
  Country: FR (occurrence: FR)
  Receive Date: 20150806
  Receipt Date: 20150915
  Transmission Date: 20151125
  Serious: Yes (Hospitalization, Other)
  Sender: FDA-Public Use
  Company Number: FR-BRISTOL-MYERS SQUIBB COMPANY-BMS-2015-050947

PATIENT
  Age: 70 Year
  Sex: Female
  Weight: 59 kg

DRUGS (1)
  1. NIVOLUMAB [Suspect]
     Active Substance: NIVOLUMAB
     Indication: LUNG ADENOCARCINOMA
     Dosage: 177 MG, UNK;
     Route: 065
     Dates: start: 20150706

REACTIONS (5)
  - White blood cell count decreased [Unknown]
  - Haemoglobin decreased [Unknown]
  - Osteoporotic fracture [Recovering/Resolving]
  - Neutrophil count decreased [Unknown]
  - Lymphopenia [Unknown]

NARRATIVE: CASE EVENT DATE: 20150720
